FAERS Safety Report 4359646-1 (Version None)
Quarter: 2004Q2

REPORT INFORMATION
  Report Type: 
  Country: None (occurrence: None)
  Receive Date: 20040517
  Receipt Date: 20040517
  Transmission Date: 20050107
  Serious: Yes (Hospitalization, Disabling)
  Sender: FDA-Public Use
  Company Number: None

PATIENT
  Age: 31 Year
  Sex: Female
  Weight: 50.3493 kg

DRUGS (1)
  1. MEDROL [Suspect]
     Indication: INFERTILITY
     Dosage: 16 MG 6 PILLS ORAL
     Route: 048

REACTIONS (3)
  - ARTHRALGIA [None]
  - ASEPTIC NECROSIS BONE [None]
  - BONE PAIN [None]
